FAERS Safety Report 4924323-2 (Version None)
Quarter: 2006Q1

REPORT INFORMATION
  Report Type: 
  Country: None (occurrence: None)
  Receive Date: 20060227
  Receipt Date: 20060112
  Transmission Date: 20060701
  Serious: No
  Sender: FDA-Public Use
  Company Number: US-GLAXOSMITHKLINE-A0589013A

PATIENT
  Age: 63 Year
  Sex: Female

DRUGS (7)
  1. WELLBUTRIN [Suspect]
     Indication: DEPRESSION
     Dosage: 150MG PER DAY
     Route: 048
     Dates: start: 20050912, end: 20051213
  2. WELLBUTRIN [Suspect]
     Dosage: 150MG TWICE PER DAY
     Route: 048
     Dates: start: 20051213
  3. IMITREX [Suspect]
     Indication: MIGRAINE
     Dosage: 50MG AS REQUIRED
     Route: 048
  4. CLARINEX [Concomitant]
  5. CYTOMEL [Concomitant]
  6. DOXEPIN [Concomitant]
  7. EFFEXOR [Concomitant]

REACTIONS (7)
  - ABDOMINAL PAIN [None]
  - ARTHRALGIA [None]
  - DRUG INEFFECTIVE [None]
  - INFLUENZA LIKE ILLNESS [None]
  - INSOMNIA [None]
  - MIGRAINE [None]
  - VOMITING [None]
